FAERS Safety Report 14351000 (Version 1)
Quarter: 2018Q1

REPORT INFORMATION
  Report Type: Spontaneous
  Country: US (occurrence: US)
  Receive Date: 20180104
  Receipt Date: 20180104
  Transmission Date: 20180509
  Serious: Yes (Other)
  Sender: FDA-Public Use
  Company Number: US-SUPERNUS PHARMACEUTICALS, INC.-2017SUP00352

PATIENT
  Sex: Female
  Weight: 90.7 kg

DRUGS (5)
  1. LATANOPROST. [Concomitant]
     Active Substance: LATANOPROST
     Dosage: 1 GTT IN THE LEFT EYE, 1X/DAY
  2. TROKENDI XR [Suspect]
     Active Substance: TOPIRAMATE
     Dosage: 75 MG, 1X/DAY
     Route: 048
     Dates: start: 20171214, end: 20171220
  3. TROKENDI XR [Suspect]
     Active Substance: TOPIRAMATE
     Indication: MIGRAINE
     Dosage: 25 MG, 1X/DAY
     Route: 048
     Dates: start: 20171130, end: 20171206
  4. TROKENDI XR [Suspect]
     Active Substance: TOPIRAMATE
     Dosage: 100 MG, 1X/DAY
     Route: 048
     Dates: start: 20171221
  5. TROKENDI XR [Suspect]
     Active Substance: TOPIRAMATE
     Dosage: 50 MG, 1X/DAY
     Route: 048
     Dates: start: 20171207, end: 20171213

REACTIONS (7)
  - Dyspnoea [Not Recovered/Not Resolved]
  - Pneumonitis [Not Recovered/Not Resolved]
  - Cough [Not Recovered/Not Resolved]
  - Post-tussive vomiting [Not Recovered/Not Resolved]
  - Nasopharyngitis [Not Recovered/Not Resolved]
  - Hypersensitivity [Not Recovered/Not Resolved]
  - Weight increased [Not Recovered/Not Resolved]

NARRATIVE: CASE EVENT DATE: 2017
